FAERS Safety Report 10064633 (Version 1)
Quarter: 2014Q2

REPORT INFORMATION
  Report Type: Spontaneous
  Country: US (occurrence: None)
  Receive Date: 20140404
  Receipt Date: 20140404
  Transmission Date: 20141212
  Serious: Yes (Other)
  Sender: FDA-Public Use
  Company Number: FK201401175

PATIENT
  Age: 56 Year
  Sex: Male

DRUGS (3)
  1. OXALIPLATIN (MANUFACTURER UNKNOWN) (OXALIPLATIN) (OXALIPLATIN) [Suspect]
     Indication: COLON CANCER METASTATIC
  2. FLUOROURACIL (FLUOROURACIL) [Concomitant]
  3. FOLINIC ACID (FOLINIC ACID) [Concomitant]

REACTIONS (7)
  - Anaphylactic reaction [None]
  - Autoimmune haemolytic anaemia [None]
  - Haemoglobin decreased [None]
  - Blood lactate dehydrogenase increased [None]
  - Platelet count decreased [None]
  - Toxicity to various agents [None]
  - Type I hypersensitivity [None]
